FAERS Safety Report 25278844 (Version 1)
Quarter: 2025Q2

REPORT INFORMATION
  Report Type: Spontaneous
  Country: FR (occurrence: FR)
  Receive Date: 20250507
  Receipt Date: 20250507
  Transmission Date: 20250716
  Serious: Yes (Hospitalization)
  Sender: PFIZER
  Company Number: None

PATIENT
  Age: 50 Year
  Sex: Male

DRUGS (23)
  1. TYGACIL [Interacting]
     Active Substance: TIGECYCLINE
     Indication: Mycobacterium abscessus infection
     Dosage: 50 MG, 2X/DAY
     Route: 042
     Dates: start: 20250325, end: 20250402
  2. PROGRAF [Interacting]
     Active Substance: TACROLIMUS
     Indication: Lung transplant
     Dosage: 1.5 MG, 2X/DAY
     Route: 048
  3. ZITHROMAX [Concomitant]
     Active Substance: AZITHROMYCIN DIHYDRATE
  4. IMIPENEM [Concomitant]
     Active Substance: IMIPENEM
  5. CLOFAZIMINE [Concomitant]
     Active Substance: CLOFAZIMINE
  6. CELLCEPT [Concomitant]
     Active Substance: MYCOPHENOLATE MOFETIL
  7. PREDNISONE [Concomitant]
     Active Substance: PREDNISONE
  8. BACTRIM [Concomitant]
     Active Substance: SULFAMETHOXAZOLE\TRIMETHOPRIM
  9. ESOMEPRAZOLE MAGNESIUM [Concomitant]
     Active Substance: ESOMEPRAZOLE MAGNESIUM
  10. AMLODIPINE BESYLATE [Concomitant]
     Active Substance: AMLODIPINE BESYLATE
  11. DOLIPRANE [Concomitant]
     Active Substance: ACETAMINOPHEN
  12. RIBAVIRIN [Concomitant]
     Active Substance: RIBAVIRIN
  13. VALACYCLOVIR HYDROCHLORIDE [Concomitant]
     Active Substance: VALACYCLOVIR HYDROCHLORIDE
  14. CARVEDILOL [Concomitant]
     Active Substance: CARVEDILOL
  15. ALLOPURINOL [Concomitant]
     Active Substance: ALLOPURINOL
  16. SYMBICORT [Concomitant]
     Active Substance: BUDESONIDE\FORMOTEROL FUMARATE DIHYDRATE
  17. TERBUTALINE SULFATE [Concomitant]
     Active Substance: TERBUTALINE SULFATE
  18. PRIMPERAN [Concomitant]
     Active Substance: METOCLOPRAMIDE HYDROCHLORIDE
  19. RACECADOTRIL [Concomitant]
     Active Substance: RACECADOTRIL
  20. IMODIUM [Concomitant]
     Active Substance: LOPERAMIDE HYDROCHLORIDE
  21. PHLOROGLUCINOL\1,3,5-TRIMETHOXYBENZENE [Concomitant]
     Active Substance: PHLOROGLUCINOL\1,3,5-TRIMETHOXYBENZENE
  22. CILASTATIN SODIUM\IMIPENEM [Concomitant]
     Active Substance: CILASTATIN SODIUM\IMIPENEM
  23. COLISTIMETHATE SODIUM\PENICILLIN G POTASSIUM [Concomitant]
     Active Substance: COLISTIMETHATE SODIUM\PENICILLIN G POTASSIUM

REACTIONS (4)
  - Pancreatitis acute [Recovering/Resolving]
  - Acute kidney injury [Recovered/Resolved]
  - Drug interaction [Recovered/Resolved]
  - Drug level increased [Recovered/Resolved]

NARRATIVE: CASE EVENT DATE: 20250325
